FAERS Safety Report 7339061-9 (Version None)
Quarter: 2011Q1

REPORT INFORMATION
  Report Type: 
  Country: None (occurrence: None)
  Receive Date: 20110308
  Receipt Date: 20110221
  Transmission Date: 20110831
  Serious: Yes (Disabling)
  Sender: FDA-Public Use
  Company Number: JP-TEVA-269699ISR

PATIENT
  Age: 60 Year
  Sex: Male

DRUGS (7)
  1. IRBESARTAN [Concomitant]
     Indication: HYPERTENSION
     Dosage: 100 MG
     Dates: start: 20101201
  2. DEXAMETHASONE [Concomitant]
     Dosage: 6.6 MG
     Route: 042
     Dates: start: 20110208, end: 20110210
  3. CISPLATIN [Suspect]
     Indication: LUNG NEOPLASM MALIGNANT
     Dosage: 136 MG
     Route: 042
     Dates: start: 20110208
  4. ETOPOSIDE [Concomitant]
     Indication: LUNG NEOPLASM MALIGNANT
     Dosage: 170 MG
     Dates: start: 20110208, end: 20110210
  5. PALONOSETRON HYDROCHLORIDE [Concomitant]
     Dosage: 0.75 MG
     Route: 042
     Dates: start: 20110208
  6. APREPITANT [Concomitant]
     Dosage: 80 MG
     Route: 048
     Dates: start: 20110209, end: 20110210
  7. APREPITANT [Concomitant]
     Dosage: 125 MG
     Route: 048
     Dates: start: 20110208

REACTIONS (2)
  - SPLENIC INFARCTION [None]
  - RENAL INFARCT [None]
